FAERS Safety Report 7957044-2 (Version None)
Quarter: 2011Q4

REPORT INFORMATION
  Report Type: 
  Country: None (occurrence: None)
  Receive Date: 20111205
  Receipt Date: 20111128
  Transmission Date: 20120403
  Serious: Yes (Disabling)
  Sender: FDA-Public Use
  Company Number: GB-ROCHE-1017878

PATIENT
  Sex: Male

DRUGS (8)
  1. ASPIRIN [Concomitant]
     Indication: MYOCARDIAL ISCHAEMIA
  2. URSODIOL [Concomitant]
     Indication: BILIARY CIRRHOSIS PRIMARY
  3. HYDROXYCHLOROQUINE [Concomitant]
     Indication: RHEUMATOID ARTHRITIS
     Route: 048
  4. PREDNISOLONE [Concomitant]
     Indication: RHEUMATOID ARTHRITIS
  5. ROSUVASTATIN [Concomitant]
     Indication: BLOOD CHOLESTEROL INCREASED
  6. NICORANDIL [Concomitant]
     Indication: MYOCARDIAL ISCHAEMIA
  7. MABTHERA [Suspect]
     Indication: RHEUMATOID ARTHRITIS
     Route: 042
     Dates: start: 20110512, end: 20111128
  8. ATENOLOL [Concomitant]
     Indication: HYPERTENSION

REACTIONS (2)
  - DIARRHOEA [None]
  - WEIGHT DECREASED [None]
